FAERS Safety Report 7680730-9 (Version None)
Quarter: 2011Q3

REPORT INFORMATION
  Report Type: 
  Country: None (occurrence: None)
  Receive Date: 20110812
  Receipt Date: 20110805
  Transmission Date: 20111222
  Serious: Yes (Other)
  Sender: FDA-Public Use
  Company Number: US-GENENTECH-304066

PATIENT
  Sex: Female

DRUGS (12)
  1. CENTRUM [Concomitant]
     Indication: VITAMIN SUPPLEMENTATION
     Dosage: UNK
     Dates: start: 19990101
  2. PRILOSEC [Concomitant]
     Indication: DYSPEPSIA
     Dosage: UNK
     Dates: start: 20060101
  3. CALCIUM 600 + D PRODUCT NOS [Concomitant]
     Indication: VITAMIN SUPPLEMENTATION
     Dosage: UNK
     Dates: start: 20070101
  4. ACETAMINOPHEN [Concomitant]
     Indication: ARTHRITIS
     Dosage: UNK
     Dates: start: 19800101
  5. ACETAMINOPHEN [Concomitant]
     Indication: CROHN'S DISEASE
  6. ASACOL [Concomitant]
     Indication: CROHN'S DISEASE
     Dosage: UNK
     Dates: start: 20100618
  7. FUROSEMIDE [Concomitant]
     Indication: FLUID RETENTION
     Dosage: UNK
     Dates: start: 19990101
  8. RANIBIZUMAB [Suspect]
     Indication: AGE-RELATED MACULAR DEGENERATION
     Dosage: 0.05 ML, PRN
     Route: 031
     Dates: start: 20090714
  9. LEVOTHROID [Concomitant]
     Indication: HYPOTHYROIDISM
  10. LISINOPRIL [Concomitant]
     Indication: HYPERTENSION
     Dosage: UNK
     Dates: start: 20020101
  11. METOPROLOL TARTRATE [Concomitant]
     Indication: HYPERTENSION
     Dosage: UNK
     Dates: start: 19990101
  12. SIMVASTATIN [Concomitant]
     Indication: BLOOD CHOLESTEROL INCREASED
     Dosage: UNK

REACTIONS (1)
  - DEEP VEIN THROMBOSIS [None]
